FAERS Safety Report 12138239 (Version 1)
Quarter: 2016Q1

REPORT INFORMATION
  Report Type: Spontaneous
  Country: US (occurrence: US)
  Receive Date: 20160302
  Receipt Date: 20160302
  Transmission Date: 20160526
  Serious: No
  Sender: FDA-Public Use
  Company Number: US-ELI_LILLY_AND_COMPANY-US201602005973

PATIENT
  Sex: Female

DRUGS (4)
  1. CALCIUM [Concomitant]
     Active Substance: CALCIUM
  2. FORTEO [Suspect]
     Active Substance: TERIPARATIDE
     Indication: OSTEOPOROSIS
     Dosage: UNK UNK, QD
     Route: 065
     Dates: start: 201511
  3. VITAMIN D [Concomitant]
     Active Substance: CHOLECALCIFEROL
  4. CITRACAL MAXIMUM [Concomitant]
     Active Substance: CALCIUM CITRATE\CHOLECALCIFEROL

REACTIONS (2)
  - Injection site rash [Unknown]
  - Injection site pain [Unknown]
